FAERS Safety Report 12513977 (Version 1)
Quarter: 2016Q2

REPORT INFORMATION
  Report Type: Spontaneous
  Country: US (occurrence: None)
  Receive Date: 20160629
  Receipt Date: 20160629
  Transmission Date: 20160815
  Serious: No
  Sender: FDA-Public Use
  Company Number: None

PATIENT
  Age: 5 Year
  Sex: Female
  Weight: 17 kg

DRUGS (4)
  1. IV PROMETHAZINE [Suspect]
     Active Substance: PROMETHAZINE HYDROCHLORIDE
  2. HEPARIN FLUSH [Suspect]
     Active Substance: HEPARIN SODIUM
  3. ETOPOSIDE, 20 MG/ML [Suspect]
     Active Substance: ETOPOSIDE
     Indication: STEM CELL TRANSPLANT
     Route: 042
  4. NS [Suspect]
     Active Substance: SODIUM CHLORIDE

REACTIONS (2)
  - Product deposit [None]
  - Product quality issue [None]

NARRATIVE: CASE EVENT DATE: 20160617
